FAERS Safety Report 18179194 (Version 6)
Quarter: 2020Q4

REPORT INFORMATION
  Report Type: Report from Study
  Country: FR (occurrence: FR)
  Receive Date: 20200821
  Receipt Date: 20201105
  Transmission Date: 20210113
  Serious: Yes (Hospitalization)
  Sender: FDA-Public Use
  Company Number: FR-ROCHE-2661479

PATIENT
  Age: 66 Year
  Sex: Female
  Weight: 89 kg

DRUGS (18)
  1. ATEZOLIZUMAB. [Suspect]
     Active Substance: ATEZOLIZUMAB
     Indication: TRIPLE NEGATIVE BREAST CANCER
     Dosage: DATE OF MOST RECENT DOSE OF ATEZOLIZUMAB PRIOR TO DETERIORATION OF GENERAL CONDITION ONSET 15/JUL/20
     Route: 042
     Dates: start: 20190507
  2. BISOPROLOL [Concomitant]
     Active Substance: BISOPROLOL
     Dates: start: 20200725
  3. METHYLPREDNISOLONE. [Concomitant]
     Active Substance: METHYLPREDNISOLONE
     Indication: PREMEDICATION
     Route: 042
     Dates: start: 20191105, end: 20191105
  4. METHYLPREDNISOLONE. [Concomitant]
     Active Substance: METHYLPREDNISOLONE
     Route: 042
     Dates: start: 20191127, end: 20191127
  5. AMIKLIN [Concomitant]
     Active Substance: AMIKACIN SULFATE
     Dates: start: 20200804
  6. NORADRENALINE [Concomitant]
     Active Substance: NOREPINEPHRINE
     Dates: start: 20200804
  7. ROVAMYCINE [Concomitant]
     Active Substance: SPIRAMYCIN
     Dates: start: 20200804
  8. DOBUTAMINE [Concomitant]
     Active Substance: DOBUTAMINE HYDROCHLORIDE
     Dates: start: 20200805
  9. METOCLOPRAMIDE. [Concomitant]
     Active Substance: METOCLOPRAMIDE
     Dates: start: 20200725
  10. NIVESTIM [Concomitant]
     Active Substance: FILGRASTIM
     Dates: start: 20200211, end: 20200717
  11. PACLITAXEL. [Suspect]
     Active Substance: PACLITAXEL
     Indication: TRIPLE NEGATIVE BREAST CANCER
     Dosage: DATE OF MOST RECENT DOSE OF PACLITAXEL PRIOR TO DETERIORATION OF GENERAL CONDITION ONSET 15/JUL/2020
     Route: 042
     Dates: start: 20190507
  12. PRETERAX [Concomitant]
     Active Substance: INDAPAMIDE\PERINDOPRIL
     Dates: start: 200901
  13. ROCEPHINE [Concomitant]
     Active Substance: CEFTRIAXONE SODIUM
     Dates: start: 20200804, end: 20200804
  14. SALBUTAMOL [Concomitant]
     Active Substance: ALBUTEROL
     Dates: start: 20200804
  15. KALEORID LP [Concomitant]
     Active Substance: POTASSIUM CHLORIDE
     Dates: start: 200901
  16. TAZOCILLINE [Concomitant]
     Active Substance: PIPERACILLIN SODIUM\TAZOBACTAM SODIUM
     Dates: start: 20200804
  17. METHYLPREDNISOLONE. [Concomitant]
     Active Substance: METHYLPREDNISOLONE
     Route: 042
     Dates: start: 20191119, end: 20191119
  18. METHYLPREDNISOLONE. [Concomitant]
     Active Substance: METHYLPREDNISOLONE
     Route: 042
     Dates: start: 20191204, end: 20191204

REACTIONS (2)
  - Cortisol decreased [Not Recovered/Not Resolved]
  - General physical health deterioration [Recovered/Resolved]

NARRATIVE: CASE EVENT DATE: 20200717
